FAERS Safety Report 6274359-7 (Version None)
Quarter: 2009Q3

REPORT INFORMATION
  Report Type: 
  Country: None (occurrence: None)
  Receive Date: 20090716
  Receipt Date: 20090709
  Transmission Date: 20100115
  Serious: Yes (Death, Other)
  Sender: FDA-Public Use
  Company Number: 2009JP004242

PATIENT
  Age: 52 Year
  Sex: Male

DRUGS (8)
  1. TACROLIMUS [Suspect]
     Indication: RENAL TRANSPLANT
  2. MYCOPHENOLIC ACID [Suspect]
     Indication: RENAL TRANSPLANT
  3. FUROSEMIDE(FUROSEMIDE) FORMULATION UNKNOWN [Suspect]
  4. CLOBETASOL PROPIONATE [Concomitant]
  5. METHYLPREDNISOLONE [Concomitant]
  6. DAPSONE [Concomitant]
  7. DOXYCYCLINE (DOXYCYCLINE) [Concomitant]
  8. NICOTINAMIDE [Concomitant]

REACTIONS (2)
  - PEMPHIGOID [None]
  - SEPSIS [None]
